FAERS Safety Report 19200855 (Version 1)
Quarter: 2021Q2

REPORT INFORMATION
  Report Type: Spontaneous
  Country: US (occurrence: US)
  Receive Date: 20210430
  Receipt Date: 20210430
  Transmission Date: 20210717
  Serious: Yes (Hospitalization, Other)
  Sender: FDA-Public Use
  Company Number: US-PFIZER INC-2021450736

PATIENT
  Age: 50 Year
  Sex: Male

DRUGS (5)
  1. AUBAGIO [Suspect]
     Active Substance: TERIFLUNOMIDE
     Indication: MULTIPLE SCLEROSIS
     Dosage: 14 MG, 1X/DAY
     Route: 048
     Dates: start: 20191228
  2. AUBAGIO [Suspect]
     Active Substance: TERIFLUNOMIDE
     Dosage: 14 MG, 1X/DAY
     Route: 048
  3. AUBAGIO [Suspect]
     Active Substance: TERIFLUNOMIDE
     Dosage: 14 MG, 1X/DAY
     Route: 048
     Dates: start: 20191031
  4. CHANTIX [Suspect]
     Active Substance: VARENICLINE TARTRATE
     Indication: SMOKING CESSATION THERAPY
     Dosage: UNK
  5. AUBAGIO [Suspect]
     Active Substance: TERIFLUNOMIDE
     Dosage: 14 MG, 1X/DAY
     Route: 048
     Dates: start: 20191228

REACTIONS (11)
  - Dehydration [Unknown]
  - Burning sensation [Unknown]
  - Fatigue [Unknown]
  - Tremor [Unknown]
  - Urinary incontinence [Unknown]
  - Diarrhoea [Unknown]
  - Skin burning sensation [Unknown]
  - Product dose omission issue [Unknown]
  - Mental disorder [Unknown]
  - Depression [Unknown]
  - Malaise [Unknown]

NARRATIVE: CASE EVENT DATE: 202005
